FAERS Safety Report 5102364-2 (Version None)
Quarter: 2006Q3

REPORT INFORMATION
  Report Type: 
  Country: None (occurrence: None)
  Receive Date: 20060912
  Receipt Date: 20060627
  Transmission Date: 20061208
  Serious: No
  Sender: FDA-Public Use
  Company Number: US-GLAXOSMITHKLINE-A0610507A

PATIENT
  Age: 57 Year
  Sex: Female

DRUGS (9)
  1. FLOVENT [Suspect]
     Indication: ASTHMA
     Dosage: 2PUFF TWICE PER DAY
     Route: 055
  2. ADVAIR DISKUS 100/50 [Suspect]
     Dosage: 1PUFF TWICE PER DAY
     Route: 055
     Dates: start: 20041001, end: 20050101
  3. FEMHRT [Concomitant]
  4. UNKNOWN MEDICATION [Concomitant]
  5. SINGULAIR [Concomitant]
  6. CLARINEX [Concomitant]
  7. RITALIN [Concomitant]
  8. DUONEB [Concomitant]
  9. ESTRATEST [Concomitant]

REACTIONS (12)
  - AGEUSIA [None]
  - ANOREXIA [None]
  - BURNING SENSATION [None]
  - CANDIDIASIS [None]
  - CONSTIPATION [None]
  - DRUG INEFFECTIVE [None]
  - DYSGEUSIA [None]
  - NAUSEA [None]
  - PHARMACEUTICAL PRODUCT COMPLAINT [None]
  - PYREXIA [None]
  - SPEECH DISORDER [None]
  - URINARY TRACT INFECTION [None]
